FAERS Safety Report 16768228 (Version 1)
Quarter: 2019Q4

REPORT INFORMATION
  Report Type: Spontaneous
  Country: US (occurrence: US)
  Receive Date: 20190903
  Receipt Date: 20190903
  Transmission Date: 20200122
  Serious: Yes (Other)
  Sender: FDA-Public Use
  Company Number: None

PATIENT
  Age: 53 Year
  Sex: Female
  Weight: 81.1 kg

DRUGS (1)
  1. GLEOLAN [Suspect]
     Active Substance: AMINOLEVULINIC ACID HYDROCHLORIDE
     Indication: BRAIN TUMOUR OPERATION
     Dosage: ?          OTHER FREQUENCY:ONCE;?
     Route: 048
     Dates: start: 20190820, end: 20190820

REACTIONS (5)
  - Angioedema [None]
  - Oropharyngeal oedema [None]
  - Lethargy [None]
  - Flushing [None]
  - Pyrexia [None]

NARRATIVE: CASE EVENT DATE: 20190820
